FAERS Safety Report 13626277 (Version 1)
Quarter: 2017Q2

REPORT INFORMATION
  Report Type: Spontaneous
  Country: US (occurrence: US)
  Receive Date: 20170531
  Receipt Date: 20170531
  Transmission Date: 20170830
  Serious: Yes (Other)
  Sender: FDA-Public Use
  Company Number: US-ASTELLAS-1328590

PATIENT
  Sex: Female

DRUGS (26)
  1. TARCEVA [Suspect]
     Active Substance: ERLOTINIB HYDROCHLORIDE
     Indication: LUNG NEOPLASM MALIGNANT
     Dosage: FREQUENCY: QD
     Route: 048
     Dates: start: 20130927
  2. NIFEDIPINE. [Concomitant]
     Active Substance: NIFEDIPINE
     Dosage: XL 30
     Route: 065
  3. LIDOCAINE. [Concomitant]
     Active Substance: LIDOCAINE
     Route: 065
  4. GABAPENTIN. [Concomitant]
     Active Substance: GABAPENTIN
     Dosage: DC^D
     Route: 065
  5. LIDODERM [Concomitant]
     Active Substance: LIDOCAINE
     Dosage: LIDODERM PATCH 590
     Route: 065
  6. POLYETHYLENE GLYCOL [Concomitant]
     Active Substance: POLYETHYLENE GLYCOLS
     Dosage: 3350
     Route: 065
  7. HYDROCODONE BITARTRATE AND ACETAMINOPHEN [Concomitant]
     Active Substance: ACETAMINOPHEN\HYDROCODONE BITARTRATE
  8. ESCITALOPRAM [Concomitant]
     Active Substance: ESCITALOPRAM OXALATE
     Dosage: DC^D
     Route: 065
  9. ATENOLOL. [Concomitant]
     Active Substance: ATENOLOL
     Route: 065
  10. FOLIC ACID. [Concomitant]
     Active Substance: FOLIC ACID
  11. ZOLPIDEM [Concomitant]
     Active Substance: ZOLPIDEM\ZOLPIDEM TARTRATE
     Route: 065
  12. AMOXCLAV [Concomitant]
     Route: 065
  13. OMEPRAZOLE. [Concomitant]
     Active Substance: OMEPRAZOLE
     Route: 065
  14. PROMETHAZINE DM SYRUP [Concomitant]
  15. CLINDAMYCIN. [Concomitant]
     Active Substance: CLINDAMYCIN
  16. OXYCODON [Concomitant]
     Active Substance: OXYCODONE
     Dosage: AND 30
     Route: 065
  17. ZOLPIDEM [Concomitant]
     Active Substance: ZOLPIDEM\ZOLPIDEM TARTRATE
     Route: 065
  18. TRIAMTERENE AND HYDROCHLOROTHIAZIDE [Concomitant]
     Active Substance: HYDROCHLOROTHIAZIDE\TRIAMTERENE
     Dosage: 37.5/25 (DC^D)
     Route: 065
  19. NIFEDICAL XL [Concomitant]
     Active Substance: NIFEDIPINE
     Dosage: XL 30
     Route: 065
  20. NIFEDIPINE. [Concomitant]
     Active Substance: NIFEDIPINE
     Dosage: XL 30
     Route: 065
  21. VALACYCLOVIR [Concomitant]
     Active Substance: VALACYCLOVIR HYDROCHLORIDE
     Dosage: DC^D
     Route: 065
  22. RANITIDINE. [Concomitant]
     Active Substance: RANITIDINE
     Route: 065
  23. DOXYCLINE [Concomitant]
     Active Substance: DOXYCYCLINE
     Route: 065
  24. SPIRONOLACTONE. [Concomitant]
     Active Substance: SPIRONOLACTONE
     Route: 065
  25. DESONIDE. [Concomitant]
     Active Substance: DESONIDE
     Dosage: 0.0540 LOTION
     Route: 065
  26. CHLORHEXIDINE [Concomitant]
     Active Substance: CHLORHEXIDINE

REACTIONS (3)
  - Diarrhoea [Not Recovered/Not Resolved]
  - Ingrowing nail [Recovering/Resolving]
  - Cyst [Recovering/Resolving]
